FAERS Safety Report 9454538 (Version 1)
Quarter: 2013Q3

REPORT INFORMATION
  Report Type: Spontaneous
  Country: TW (occurrence: TW)
  Receive Date: 20130812
  Receipt Date: 20130812
  Transmission Date: 20140515
  Serious: Yes (Hospitalization)
  Sender: FDA-Public Use
  Company Number: TW-GLAXOSMITHKLINE-B0914585A

PATIENT
  Age: 44 Year
  Sex: Female
  Weight: 77.2 kg

DRUGS (2)
  1. ELTROMBOPAG [Suspect]
     Indication: PRODUCT USED FOR UNKNOWN INDICATION
     Dosage: 25MG PER DAY
     Route: 048
     Dates: start: 20130530, end: 20130619
  2. ELTROMBOPAG [Suspect]
     Indication: PRODUCT USED FOR UNKNOWN INDICATION
     Dosage: 50MG PER DAY
     Route: 048
     Dates: start: 20130620, end: 20130701

REACTIONS (1)
  - Dermatitis contact [Recovered/Resolved]
